FAERS Safety Report 5302951-2 (Version None)
Quarter: 2007Q2

REPORT INFORMATION
  Report Type: 
  Country: None (occurrence: None)
  Receive Date: 20070417
  Receipt Date: 20070417
  Transmission Date: 20071010
  Serious: Yes (Other)
  Sender: FDA-Public Use
  Company Number: None

PATIENT
  Age: 64 Year
  Sex: Female
  Weight: 68.0396 kg

DRUGS (1)
  1. ABRAXANE [Suspect]
     Indication: BREAST CANCER
     Dates: start: 20070126, end: 20070214

REACTIONS (9)
  - ALOPECIA [None]
  - ARTHROPATHY [None]
  - CHEST DISCOMFORT [None]
  - DYSPNOEA [None]
  - FAECAL INCONTINENCE [None]
  - FEELING ABNORMAL [None]
  - HYPOAESTHESIA [None]
  - PARESIS [None]
  - URINARY INCONTINENCE [None]
